FAERS Safety Report 25658090 (Version 2)
Quarter: 2025Q3

REPORT INFORMATION
  Report Type: Spontaneous
  Country: US (occurrence: US)
  Receive Date: 20250808
  Receipt Date: 20250919
  Transmission Date: 20251021
  Serious: No
  Sender: APOTEX
  Company Number: US-APOTEX-2025AP010266

PATIENT
  Age: 75 Year
  Sex: Female

DRUGS (1)
  1. IPRATROPIUM BROMIDE [Suspect]
     Active Substance: IPRATROPIUM BROMIDE
     Indication: Sinusitis
     Dosage: 4 DOSAGE FORM, TID
     Route: 045
     Dates: start: 20250712

REACTIONS (2)
  - Product dose omission issue [Unknown]
  - Product delivery mechanism issue [Unknown]

NARRATIVE: CASE EVENT DATE: 20250712
